FAERS Safety Report 12982985 (Version 1)
Quarter: 2016Q4

REPORT INFORMATION
  Report Type: Spontaneous
  Country: US (occurrence: US)
  Receive Date: 20161129
  Receipt Date: 20161129
  Transmission Date: 20170207
  Serious: No
  Sender: FDA-Public Use
  Company Number: US-MALLINCKRODT-T201601005

PATIENT
  Age: 61 Year
  Sex: Female
  Weight: 73 kg

DRUGS (3)
  1. FENTANYL TRANSDERMAL SYSTEM [Suspect]
     Active Substance: FENTANYL
     Indication: NEUROPATHY PERIPHERAL
     Dosage: 25 MCG/HR; EVERY 3 DAYS/72 HRS
     Route: 062
     Dates: start: 201512
  2. FENTANYL TRANSDERMAL SYSTEM [Suspect]
     Active Substance: FENTANYL
     Indication: BACK DISORDER
  3. FENTANYL TRANSDERMAL SYSTEM [Suspect]
     Active Substance: FENTANYL
     Indication: PARAESTHESIA

REACTIONS (6)
  - Insomnia [Not Recovered/Not Resolved]
  - Drug ineffective [Not Recovered/Not Resolved]
  - Wrong technique in product usage process [Recovered/Resolved]
  - Weight increased [Not Recovered/Not Resolved]
  - Increased appetite [Recovered/Resolved]
  - Product adhesion issue [Not Recovered/Not Resolved]

NARRATIVE: CASE EVENT DATE: 201512
